FAERS Safety Report 5877046-X (Version None)
Quarter: 2008Q3

REPORT INFORMATION
  Report Type: 
  Country: None (occurrence: None)
  Receive Date: 20080910
  Receipt Date: 20080903
  Transmission Date: 20090109
  Serious: Yes (Other)
  Sender: FDA-Public Use
  Company Number: PHHY2008DE20095

PATIENT
  Sex: Male

DRUGS (3)
  1. ZOMETA [Suspect]
     Dosage: UNK
     Dates: start: 20040101
  2. BENDAMUSTINE [Concomitant]
     Dosage: UNK
     Dates: start: 20050701, end: 20051101
  3. BENDAMUSTINE [Concomitant]
     Dosage: UNK
     Dates: start: 20070601, end: 20071001

REACTIONS (3)
  - JAW FRACTURE [None]
  - OSTEOMYELITIS [None]
  - OSTEONECROSIS [None]
